FAERS Safety Report 9316384 (Version 1)
Quarter: 2013Q2

REPORT INFORMATION
  Report Type: Report from Study
  Country: US (occurrence: US)
  Receive Date: 20130530
  Receipt Date: 20130530
  Transmission Date: 20140414
  Serious: Yes (Other)
  Sender: FDA-Public Use
  Company Number: US-ROXANE LABORATORIES, INC.-2013-BI-15278GD

PATIENT
  Sex: 0

DRUGS (11)
  1. PREDNISONE [Suspect]
     Indication: B-CELL LYMPHOMA
     Dosage: 60 MG/ME2
  2. PREDNISONE [Suspect]
     Dosage: 60 MG/ME2
  3. RITUXIMAB [Suspect]
     Indication: B-CELL LYMPHOMA
     Dosage: 375 MG/ME2; INFUSED AT 0.5 MG/KG/H FOR THE FIRST HOUR OF THE INITIAL INFUSION AND THEN INCREASED EVE
  4. RITUXIMAB [Suspect]
     Dosage: 375 MG/ME2; INFUSED AT 0.5 MG/KG/H FOR THE FIRST HOUR OF THE INITIAL INFUSION AND THEN INCREASED EVE
  5. CYCLOPHOSPHAMIDE [Suspect]
     Indication: B-CELL LYMPHOMA
     Dosage: 300 MG/ME2
  6. CYCLOPHOSPHAMIDE [Suspect]
     Dosage: 1.5 G/ME2
  7. ONCOVIN [Suspect]
     Indication: B-CELL LYMPHOMA
     Dosage: 1 MG/ME2; MAX. 2 MG
  8. VINCRISTINE [Suspect]
     Indication: B-CELL LYMPHOMA
     Dosage: 2 MG/ME2; MAX. 2 MG
  9. DOXORUBICIN [Suspect]
     Indication: B-CELL LYMPHOMA
     Dosage: 60 MG/ME2 OVER {/=1 HOUR
  10. METHOTREXATE [Suspect]
     Indication: B-CELL LYMPHOMA
     Dosage: 3 G/ME2 IN 3H OF INFUSION
     Route: 037
  11. LEUCOVORIN [Concomitant]

REACTIONS (1)
  - Enterocolitis infectious [Unknown]
